FAERS Safety Report 6232841-2 (Version None)
Quarter: 2009Q2

REPORT INFORMATION
  Report Type: 
  Country: None (occurrence: None)
  Receive Date: 20090617
  Receipt Date: 20080710
  Transmission Date: 20091009
  Serious: No
  Sender: FDA-Public Use
  Company Number: US-ASTRAZENECA-2008UW13872

PATIENT
  Age: 74 Year
  Sex: Female
  Weight: 94.4 kg

DRUGS (5)
  1. FASLODEX [Suspect]
     Indication: BREAST CANCER
     Dates: start: 20050101
  2. NEXIUM [Concomitant]
  3. LEXAPRO [Concomitant]
  4. LEVOTHYROXINE SODIUM [Concomitant]
  5. GABAPENTIN [Concomitant]

REACTIONS (1)
  - DRY SKIN [None]
